FAERS Safety Report 8169714-4 (Version None)
Quarter: 2012Q1

REPORT INFORMATION
  Report Type: 
  Country: None (occurrence: None)
  Receive Date: 20120228
  Receipt Date: 20120221
  Transmission Date: 20120608
  Serious: No
  Sender: FDA-Public Use
  Company Number: JP-JNJFOC-20120211991

PATIENT
  Sex: Female

DRUGS (4)
  1. GALANTAMINE HYDROBROMIDE [Suspect]
     Indication: DEMENTIA
     Route: 048
  2. DIAZEPAM [Concomitant]
     Route: 065
  3. UNKNOWN THERAPEUTIC AGENT [Concomitant]
     Route: 065
  4. LANSOPRAZOLE [Suspect]
     Indication: GASTROINTESTINAL DISORDER
     Route: 048

REACTIONS (1)
  - HYPONATRAEMIA [None]
